FAERS Safety Report 8878950 (Version 1)
Quarter: 2012Q4

REPORT INFORMATION
  Report Type: 
  Country: TR (occurrence: TR)
  Receive Date: 20121026
  Receipt Date: 20121026
  Transmission Date: 20130627
  Serious: Yes (Other)
  Sender: FDA-Public Use
  Company Number: TR-PFIZER INC-2012261432

PATIENT
  Age: 27 Year
  Sex: Male

DRUGS (1)
  1. LATANOPROST [Suspect]
     Indication: INTRAOCULAR PRESSURE INCREASED
     Dosage: UNK

REACTIONS (2)
  - Graft complication [Recovered/Resolved]
  - Simplex virus test positive [Unknown]
